FAERS Safety Report 19482141 (Version 1)
Quarter: 2021Q3

REPORT INFORMATION
  Report Type: Spontaneous
  Country: DE (occurrence: DE)
  Receive Date: 20210701
  Receipt Date: 20210701
  Transmission Date: 20211014
  Serious: Yes (Hospitalization, Other)
  Sender: FDA-Public Use
  Company Number: DE-ASTRAZENECA-2018SF02219

PATIENT
  Age: 26 Year
  Sex: Male

DRUGS (4)
  1. HALDOL [Suspect]
     Active Substance: HALOPERIDOL
     Dosage: 2?10 MG/D
     Route: 048
     Dates: start: 20170926, end: 20171001
  2. SEROQUEL [Suspect]
     Active Substance: QUETIAPINE FUMARATE
     Route: 048
     Dates: start: 20171002, end: 20171003
  3. NEUROCIL (LEVOMEPROMAZINE MALEATE) [Suspect]
     Active Substance: LEVOMEPROMAZINE MALEATE
     Route: 048
     Dates: start: 20170924, end: 20171001
  4. SEROQUEL [Suspect]
     Active Substance: QUETIAPINE FUMARATE
     Route: 048
     Dates: start: 20170923, end: 20170925

REACTIONS (1)
  - Deep vein thrombosis [Not Recovered/Not Resolved]

NARRATIVE: CASE EVENT DATE: 20171002
